FAERS Safety Report 5215201-2 (Version None)
Quarter: 2007Q1

REPORT INFORMATION
  Report Type: 
  Country: None (occurrence: None)
  Receive Date: 20070117
  Receipt Date: 20061229
  Transmission Date: 20070707
  Serious: Yes (Other)
  Sender: FDA-Public Use
  Company Number: DSA_29181_2007

PATIENT
  Age: 84 Year
  Sex: Female

DRUGS (2)
  1. ORFIDAL [Suspect]
     Dosage: PO
     Route: 048
     Dates: start: 20051110
  2. CYMBALTA [Suspect]
     Indication: DEPRESSION
     Dosage: 60 MG Q DAY PO
     Route: 048
     Dates: start: 20061011, end: 20061103

REACTIONS (6)
  - AGGRESSION [None]
  - AGITATION [None]
  - CONFUSIONAL STATE [None]
  - DRY MOUTH [None]
  - FALL [None]
  - NAUSEA [None]
